FAERS Safety Report 4736530-2 (Version None)
Quarter: 2005Q3

REPORT INFORMATION
  Report Type: 
  Country: None (occurrence: None)
  Receive Date: 20050804
  Receipt Date: 20050726
  Transmission Date: 20060218
  Serious: Yes (Hospitalization)
  Sender: FDA-Public Use
  Company Number: 9946640

PATIENT
  Age: 76 Year
  Sex: Female
  Weight: 58.9676 kg

DRUGS (10)
  1. FELDENE [Suspect]
     Indication: MONARTHRITIS
     Dosage: 20 MG (DAILY), ORAL
     Route: 048
     Dates: start: 19891026
  2. FELDENE [Suspect]
     Indication: OSTEOARTHRITIS
     Dosage: 20 MG (DAILY), ORAL
     Route: 048
     Dates: start: 19891026
  3. SYNTHROID [Suspect]
     Indication: HYPOTHYROIDISM
     Dosage: ORAL
     Route: 048
     Dates: start: 19891026
  4. VITAMINS (VITAMINS) [Concomitant]
  5. GLUCOSAMINE (GLUCOSAMINE) [Concomitant]
  6. ATIVAN [Concomitant]
  7. ZANTAC [Concomitant]
  8. HYDROCHLOROTHIAZIDE [Concomitant]
  9. CLARITIN-D [Concomitant]
  10. PROVENTIL HFA (SALBUTAMOL) [Concomitant]

REACTIONS (9)
  - ABDOMINAL DISTENSION [None]
  - COLITIS ULCERATIVE [None]
  - COLONIC HAEMORRHAGE [None]
  - DIARRHOEA [None]
  - DRUG INEFFECTIVE [None]
  - HAEMATOCHEZIA [None]
  - PAIN [None]
  - WEIGHT DECREASED [None]
  - WEIGHT INCREASED [None]
